FAERS Safety Report 4960958-9 (Version None)
Quarter: 2006Q1

REPORT INFORMATION
  Report Type: 
  Country: None (occurrence: None)
  Receive Date: 20060328
  Receipt Date: 20060315
  Transmission Date: 20060701
  Serious: Yes (Hospitalization)
  Sender: FDA-Public Use
  Company Number: 2006RR-01801

PATIENT
  Age: 58 Year
  Sex: Female

DRUGS (6)
  1. RISPERIDONE [Suspect]
     Indication: OBSESSIVE-COMPULSIVE DISORDER
     Dosage: 1 MG, BID, ORAL
     Route: 048
     Dates: start: 20060131, end: 20060202
  2. CHLORPROMAZINE [Suspect]
     Indication: OBSESSIVE-COMPULSIVE DISORDER
     Dosage: 25 MG, QD, NOCTERNALLY, ORAL
     Route: 048
     Dates: start: 20060127, end: 20060131
  3. FLUOXETINE HCL [Suspect]
     Indication: DEPRESSION
     Dosage: 20 MG, QD, ORAL
     Route: 048
     Dates: start: 20060127, end: 20060202
  4. OMEPRAZOLE [Concomitant]
  5. GLICLAZIDE      (GLICLAZIDE) [Concomitant]
  6. METFORMIN HYDROCHLORIDE [Concomitant]

REACTIONS (3)
  - FALL [None]
  - HYPOTENSION [None]
  - SPINAL SHOCK [None]
